FAERS Safety Report 25720645 (Version 1)
Quarter: 2025Q3

REPORT INFORMATION
  Report Type: Report from Study
  Country: US (occurrence: US)
  Receive Date: 20250825
  Receipt Date: 20250825
  Transmission Date: 20251020
  Serious: Yes (Disabling)
  Sender: ABBVIE
  Company Number: US-ABBVIE-6428135

PATIENT
  Sex: Female

DRUGS (1)
  1. CREON [Suspect]
     Active Substance: PANCRELIPASE AMYLASE\PANCRELIPASE LIPASE\PANCRELIPASE PROTEASE
     Indication: Pancreatic failure
     Route: 048

REACTIONS (6)
  - Disability [Unknown]
  - Mobility decreased [Unknown]
  - Illness [Unknown]
  - Dyslexia [Unknown]
  - Vertigo [Unknown]
  - Anxiety [Unknown]
